FAERS Safety Report 12468215 (Version 1)
Quarter: 2016Q2

REPORT INFORMATION
  Report Type: Spontaneous
  Country: DE (occurrence: DE)
  Receive Date: 20160615
  Receipt Date: 20160615
  Transmission Date: 20160815
  Serious: Yes (Other)
  Sender: FDA-Public Use
  Company Number: GXKR2016DE002742

PATIENT

DRUGS (8)
  1. DOPEGYT [Concomitant]
     Active Substance: METHYLDOPA
     Indication: HYPERTENSION
     Dosage: 250 [MG/D ]
     Route: 048
     Dates: start: 20151201, end: 20160110
  2. ASPIRIN. [Concomitant]
     Active Substance: ASPIRIN
     Indication: PROPHYLAXIS
     Dosage: 100 [MG/D ]
     Route: 048
     Dates: start: 20150920, end: 20160120
  3. FOLICOMBIN [Concomitant]
     Indication: PROPHYLAXIS OF NEURAL TUBE DEFECT
     Dosage: 0.5 [MG/D ] - TRIMESTER UNKNOWN
     Route: 048
  4. CELESTAN [Concomitant]
     Active Substance: BETAMETHASONE
     Indication: MATERNAL THERAPY TO ENHANCE FOETAL LUNG MATURITY
     Dosage: 12 [MG/D ]
     Route: 030
     Dates: start: 20160208, end: 20160209
  5. VALSARTAN. [Suspect]
     Active Substance: VALSARTAN
     Indication: HYPERTENSION
     Dosage: 160 [MG/D ]
     Route: 048
     Dates: start: 20160111, end: 20160208
  6. FRAGMIN [Concomitant]
     Active Substance: DALTEPARIN SODIUM
     Indication: SYSTEMIC LUPUS ERYTHEMATOSUS
     Dosage: 5000 [IE/D ]
     Route: 058
     Dates: start: 20150920, end: 20160220
  7. DECORTIN [Concomitant]
     Active Substance: PREDNISONE
     Indication: SYSTEMIC LUPUS ERYTHEMATOSUS
     Dosage: UNK - TRIMESTER UNKNOWN
     Route: 065
  8. FUROSEMIDE. [Concomitant]
     Active Substance: FUROSEMIDE
     Indication: OLIGOHYDRAMNIOS
     Dosage: 20 [MG/D ]
     Route: 048
     Dates: start: 20160217, end: 20160219

REACTIONS (1)
  - Oligohydramnios [Recovered/Resolved]
